FAERS Safety Report 10023443 (Version 1)
Quarter: 2014Q1

REPORT INFORMATION
  Report Type: Spontaneous
  Country: US (occurrence: None)
  Receive Date: 20140319
  Receipt Date: 20140319
  Transmission Date: 20141002
  Serious: Yes (Death)
  Sender: FDA-Public Use
  Company Number: None

PATIENT
  Sex: Male
  Weight: 83.92 kg

DRUGS (18)
  1. ALBUTEROL SULFATE [Suspect]
     Indication: CHRONIC OBSTRUCTIVE PULMONARY DISEASE
     Dosage: 1 VIAL, 4 TIMES
     Route: 055
     Dates: start: 201302, end: 20141028
  2. FUROSEMIDE [Concomitant]
  3. METFORMIN [Concomitant]
  4. TERAZOSIN [Concomitant]
  5. GLIPIZIDE [Concomitant]
  6. CARVEDILOL [Concomitant]
  7. FOSINOPRIL [Concomitant]
  8. SIMVASTATIN [Concomitant]
  9. FISH FLAX [Concomitant]
  10. BORAGE OIL [Concomitant]
  11. CALCIUM [Concomitant]
  12. VITAMIN B-COMPLEX [Concomitant]
  13. VIT C [Concomitant]
  14. NIACIN [Concomitant]
  15. LUTEIN [Concomitant]
  16. CINNAMON [Concomitant]
  17. TYLENOL PM [Concomitant]
  18. CRANBERRY [Concomitant]

REACTIONS (1)
  - Respiratory failure [None]
